FAERS Safety Report 6618097-7 (Version None)
Quarter: 2010Q1

REPORT INFORMATION
  Report Type: 
  Country: None (occurrence: None)
  Receive Date: 20100308
  Receipt Date: 20100226
  Transmission Date: 20100710
  Serious: Yes (Other)
  Sender: FDA-Public Use
  Company Number: GB-ROCHE-683270

PATIENT
  Sex: Female
  Weight: 76 kg

DRUGS (7)
  1. HERCEPTIN [Suspect]
     Dosage: DOSE ALSO REPORTED AS 450MG
     Route: 042
     Dates: start: 20090626
  2. INTERFERON ALFA [Suspect]
     Route: 065
  3. FEC REGIMEN [Concomitant]
     Dosage: REPORTED AS FEC 6 PRIMARY CHEMOTHERAPY
  4. ARIMIDEX [Concomitant]
     Indication: BREAST CANCER
     Route: 048
  5. ATENOLOL [Concomitant]
     Indication: HYPERTENSION
  6. LISINOPRIL [Concomitant]
     Indication: HYPERTENSION
  7. CALCICHEW D3 [Concomitant]
     Indication: OSTEOPENIA
     Dosage: DOSEFORM = TABLETS

REACTIONS (9)
  - ABDOMINAL DISCOMFORT [None]
  - DIZZINESS [None]
  - FALL [None]
  - HEART RATE IRREGULAR [None]
  - METASTATIC RENAL CELL CARCINOMA [None]
  - MUSCULOSKELETAL CHEST PAIN [None]
  - OSTEOPENIA [None]
  - SKELETAL INJURY [None]
  - SYNCOPE [None]
